FAERS Safety Report 10418726 (Version 2)
Quarter: 2014Q3

REPORT INFORMATION
  Report Type: Spontaneous
  Country: FR (occurrence: FR)
  Receive Date: 20140829
  Receipt Date: 20140908
  Transmission Date: 20150326
  Serious: Yes (Other)
  Sender: FDA-Public Use
  Company Number: FR-PFIZER INC-2014236267

PATIENT
  Age: 88 Year
  Sex: Male

DRUGS (2)
  1. TRIATEC [Suspect]
     Active Substance: RAMIPRIL
     Dosage: UNK
     Dates: start: 20140519
  2. TEMERIT [Suspect]
     Active Substance: NEBIVOLOL
     Dosage: UNK
     Dates: start: 20140515, end: 20140519

REACTIONS (3)
  - Bradycardia [Recovered/Resolved]
  - Wrong drug administered [Recovered/Resolved]
  - Malaise [Recovered/Resolved]

NARRATIVE: CASE EVENT DATE: 20140517
